FAERS Safety Report 12356513 (Version 1)
Quarter: 2016Q2

REPORT INFORMATION
  Report Type: Report from Study
  Country: CA (occurrence: CA)
  Receive Date: 20160511
  Receipt Date: 20160511
  Transmission Date: 20160815
  Serious: Yes (Other)
  Sender: FDA-Public Use
  Company Number: CA-JNJFOC-20160319616

PATIENT
  Sex: Female
  Weight: 68 kg

DRUGS (2)
  1. REMICADE [Suspect]
     Active Substance: INFLIXIMAB
     Indication: CROHN^S DISEASE
     Route: 042
     Dates: start: 20150820, end: 20160122
  2. REMICADE [Suspect]
     Active Substance: INFLIXIMAB
     Indication: CROHN^S DISEASE
     Dosage: FOR ANOTHER TWO WEEKS
     Route: 042

REACTIONS (5)
  - Hidradenitis [Unknown]
  - Psoriasis [Unknown]
  - Adverse drug reaction [Unknown]
  - Folliculitis [Unknown]
  - Alopecia areata [Unknown]
